FAERS Safety Report 21747808 (Version 1)
Quarter: 2022Q4

REPORT INFORMATION
  Report Type: Report from Study
  Country: US (occurrence: US)
  Receive Date: 20221219
  Receipt Date: 20221219
  Transmission Date: 20230113
  Serious: Yes (Death, Other)
  Sender: FDA-Public Use
  Company Number: US-PFIZER INC-202201368510

PATIENT

DRUGS (2)
  1. CYTARABINE [Suspect]
     Active Substance: CYTARABINE
     Indication: Acute lymphocytic leukaemia
     Dosage: 3 GM/M2 Q12 H X 4 ON DAYS 0-1 AND 7-8
  2. ASPARAGINASE [Suspect]
     Active Substance: ASPARAGINASE
     Indication: Acute lymphocytic leukaemia
     Dosage: 6000 IU/M2 3 HOURS AFTER THE COMPLETION OF EACH 2-DAY CYCLE OF ARAC
     Route: 030

REACTIONS (1)
  - Gastrointestinal haemorrhage [Fatal]
